FAERS Safety Report 19403716 (Version 2)
Quarter: 2021Q2

REPORT INFORMATION
  Report Type: Report from Study
  Country: SG (occurrence: SG)
  Receive Date: 20210610
  Receipt Date: 20210624
  Transmission Date: 20210717
  Serious: Yes (Death, Other)
  Sender: FDA-Public Use
  Company Number: SG-AMGEN-SGPNI2021077635

PATIENT
  Sex: Male

DRUGS (11)
  1. LASIX [Concomitant]
     Active Substance: FUROSEMIDE
     Dosage: 20 MILLIGRAM (OM)
  2. AMG 510 [Suspect]
     Active Substance: AMG-510
     Indication: NON-SMALL CELL LUNG CANCER METASTATIC
     Dosage: 480 MILLIGRAM
     Route: 048
     Dates: start: 20210422, end: 20210427
  3. DIOVAN [Concomitant]
     Active Substance: VALSARTAN
     Dosage: 1 UNIT (ON)
  4. VEMLIDY [Concomitant]
     Active Substance: TENOFOVIR ALAFENAMIDE FUMARATE
     Dosage: 25 MILLIGRAM (OM)
  5. FOLIC ACID. [Concomitant]
     Active Substance: FOLIC ACID
     Dosage: (OM)
  6. VASTAREL [Concomitant]
     Active Substance: TRIMETAZIDINE DIHYDROCHLORIDE
     Dosage: 35 MILLIGRAM, BID
  7. PLAVIX [Concomitant]
     Active Substance: CLOPIDOGREL BISULFATE
     Dosage: 75 MILLIGRAM (OM)
  8. SODIUM CHLORIDE. [Concomitant]
     Active Substance: SODIUM CHLORIDE
     Dosage: 1 UNIT, BID
  9. NEBILET [Concomitant]
     Active Substance: NEBIVOLOL
     Dosage: 2.5 MILLIGRAM (OM)
  10. AMG 510 [Suspect]
     Active Substance: AMG-510
     Indication: K-RAS GENE MUTATION
     Dosage: 960 MILLIGRAM
     Route: 048
     Dates: start: 20210428, end: 20210516
  11. SPIRONOLACTONE. [Concomitant]
     Active Substance: SPIRONOLACTONE
     Dosage: 25 MILLIGRAM (OM)

REACTIONS (1)
  - Lung cancer metastatic [Fatal]
